FAERS Safety Report 25887422 (Version 2)
Quarter: 2025Q4

REPORT INFORMATION
  Report Type: Report from Study
  Country: US (occurrence: US)
  Receive Date: 20251006
  Receipt Date: 20251013
  Transmission Date: 20260118
  Serious: Yes (Other)
  Sender: ABBVIE
  Company Number: US-ABBVIE-6376320

PATIENT
  Age: 48 Year
  Sex: Male

DRUGS (1)
  1. SKYRIZI [Suspect]
     Active Substance: RISANKIZUMAB-RZAA
     Indication: Colitis ulcerative
     Route: 058
     Dates: start: 20241020

REACTIONS (8)
  - Abscess [Unknown]
  - Biopsy [Recovering/Resolving]
  - Biopsy pharynx abnormal [Recovered/Resolved]
  - Biopsy stomach abnormal [Recovered/Resolved]
  - Oesophageal dilation procedure [Unknown]
  - Fistula [Unknown]
  - Surgery [Unknown]
  - Nephrolithiasis [Unknown]

NARRATIVE: CASE EVENT DATE: 20250919
